FAERS Safety Report 6394262-1 (Version None)
Quarter: 2009Q4

REPORT INFORMATION
  Report Type: 
  Country: None (occurrence: None)
  Receive Date: 20091006
  Receipt Date: 20090924
  Transmission Date: 20100525
  Serious: Yes (Hospitalization)
  Sender: FDA-Public Use
  Company Number: 220002J09BRA

PATIENT
  Age: 44 Year
  Sex: Female

DRUGS (2)
  1. SAIZEN [Suspect]
     Dosage: 8 MG, 1 IN 1 DAYS
     Dates: start: 20080627, end: 20090601
  2. SODIUM LEVOTHYROXINE             (SYNTHROID) [Concomitant]

REACTIONS (2)
  - FALL [None]
  - FOOT FRACTURE [None]
